FAERS Safety Report 19827394 (Version 2)
Quarter: 2021Q4

REPORT INFORMATION
  Report Type: Spontaneous
  Country: JP (occurrence: JP)
  Receive Date: 20210914
  Receipt Date: 20211122
  Transmission Date: 20220303
  Serious: Yes (Hospitalization, Other)
  Sender: FDA-Public Use
  Company Number: JP-GLAXOSMITHKLINE-JP2021JPN192952

PATIENT
  Age: 68 Year
  Sex: Female

DRUGS (14)
  1. NUCALA [Suspect]
     Active Substance: MEPOLIZUMAB
     Indication: Eosinophilic granulomatosis with polyangiitis
     Dosage: 300 MG [EVERY 4 WEEKS]
     Dates: start: 20210219, end: 202106
  2. PREDNISOLONE [Concomitant]
     Active Substance: PREDNISOLONE
     Indication: Eosinophilic granulomatosis with polyangiitis
     Dosage: UNK
     Dates: start: 20210219
  3. PREDONINE [Concomitant]
     Active Substance: PREDNISOLONE
     Indication: Eosinophilic granulomatosis with polyangiitis
     Dosage: 17.5 MG, 1D [EVERY DAY]
     Dates: start: 2016
  4. SYMBICORT [Concomitant]
     Active Substance: BUDESONIDE\FORMOTEROL FUMARATE DIHYDRATE
     Indication: Asthma
     Dosage: 2 DF, BID
     Route: 055
     Dates: start: 2011
  5. MONTELUKAST OD [Concomitant]
     Indication: Asthma
     Dosage: 10 MG, QD
     Dates: start: 2011
  6. THEOPHYLLINE SUSTAINED-RELEASE TABLETS [Concomitant]
     Indication: Asthma
     Dosage: 200 MG, QD
     Dates: start: 2011
  7. DAIPHEN COMBINATION TABLETS [Concomitant]
     Indication: Antifungal prophylaxis
     Dosage: UNK, QD
     Dates: start: 2016
  8. VONOPRAZAN FUMARATE [Concomitant]
     Active Substance: VONOPRAZAN FUMARATE
     Indication: Oesophagitis
     Dosage: 20 MG, QD
     Dates: start: 2016
  9. PREGABALIN [Concomitant]
     Active Substance: PREGABALIN
     Indication: Neuropathy peripheral
     Dosage: 75 MG, BID
     Dates: start: 2016
  10. METHYLCOBALAMIN [Concomitant]
     Active Substance: METHYLCOBALAMIN
     Indication: Neuropathy peripheral
     Dosage: 500 ?G, BID
     Dates: start: 2016
  11. REBAMIPIDE [Concomitant]
     Active Substance: REBAMIPIDE
     Indication: Chronic gastritis
     Dosage: 100 MG, BID
     Dates: start: 2016
  12. CELECOXIB [Concomitant]
     Active Substance: CELECOXIB
     Indication: Pain
     Dosage: 100 MG, BID
     Dates: start: 2016
  13. VALPROATE SODIUM [Concomitant]
     Active Substance: VALPROATE SODIUM
     Indication: Schizophrenia
     Dosage: 200 MG, QD
     Dates: start: 2011
  14. ARIPIPRAZOLE [Concomitant]
     Active Substance: ARIPIPRAZOLE
     Indication: Schizophrenia
     Dosage: 6 MG, QD
     Dates: start: 2011

REACTIONS (5)
  - Large intestine perforation [Recovered/Resolved with Sequelae]
  - Diverticulum intestinal [Unknown]
  - Condition aggravated [Unknown]
  - Abdominal pain [Unknown]
  - Enterostomy [Unknown]

NARRATIVE: CASE EVENT DATE: 20210708
